FAERS Safety Report 9528668 (Version 1)
Quarter: 2013Q3

REPORT INFORMATION
  Report Type: Spontaneous
  Country: US (occurrence: US)
  Receive Date: 20130917
  Receipt Date: 20130917
  Transmission Date: 20140515
  Serious: No
  Sender: FDA-Public Use
  Company Number: US-BAUSCH-BL-2012-000607

PATIENT
  Age: 83 Year
  Sex: Female

DRUGS (2)
  1. ERYTHROMYCIN OPHTHALMIC OINTMENT USP 0.5% [Suspect]
     Indication: BLEPHARITIS
     Dosage: 1 RIBBON IN EACH EYE, AT BEDTIME
     Route: 047
     Dates: start: 201207
  2. CICLOSPORIN [Concomitant]

REACTIONS (1)
  - Rash [Not Recovered/Not Resolved]
